FAERS Safety Report 4673319-7 (Version None)
Quarter: 2005Q2

REPORT INFORMATION
  Report Type: 
  Country: None (occurrence: None)
  Receive Date: 20050524
  Receipt Date: 20050524
  Transmission Date: 20051028
  Serious: Yes (Hospitalization)
  Sender: FDA-Public Use
  Company Number: None

PATIENT
  Age: 60 Year
  Sex: Male
  Weight: 76.4 kg

DRUGS (16)
  1. METHADONE [Suspect]
     Indication: ARTHROPATHY
     Dosage: 5MG TAB - ONE BID
     Dates: start: 20040801
  2. METHADONE [Suspect]
     Indication: PAIN
     Dosage: 5MG TAB - ONE BID
     Dates: start: 20040801
  3. FEXOFENADINE HCL [Concomitant]
  4. ALENDRONATE SODIUM [Concomitant]
  5. CYANOCOBALAMIN [Concomitant]
  6. DESONIDE [Concomitant]
  7. MILK OF MAGNESIA TAB [Concomitant]
  8. WARFARIN SODIUM [Concomitant]
  9. BUPROPION HCL [Concomitant]
  10. ALBUTEROL [Concomitant]
  11. CALCIUM 500MG/VITAMIN D [Concomitant]
  12. IPRATROPIUM BROMIDE [Concomitant]
  13. FLUTICASONE PROP [Concomitant]
  14. RANITIDINE HCL [Concomitant]
  15. KETOCONAZOLE [Concomitant]
  16. GATIFLOXACIN [Concomitant]

REACTIONS (10)
  - BODY TEMPERATURE INCREASED [None]
  - COLONIC POLYP [None]
  - DYSPNOEA [None]
  - FEELING COLD [None]
  - INTERNATIONAL NORMALISED RATIO ABNORMAL [None]
  - ORTHOPNOEA [None]
  - OXYGEN SATURATION DECREASED [None]
  - SMALL INTESTINAL OBSTRUCTION [None]
  - TACHYCARDIA [None]
  - TREATMENT NONCOMPLIANCE [None]
